FAERS Safety Report 18672882 (Version 3)
Quarter: 2021Q1

REPORT INFORMATION
  Report Type: Spontaneous
  Country: JP (occurrence: JP)
  Receive Date: 20201229
  Receipt Date: 20210319
  Transmission Date: 20210419
  Serious: Yes (Hospitalization)
  Sender: FDA-Public Use
  Company Number: JP-CHEPLA-C20203997

PATIENT
  Age: 52 Year
  Sex: Male
  Weight: 73.3 kg

DRUGS (6)
  1. PREDONINE [Concomitant]
     Active Substance: PREDNISOLONE
     Dates: start: 20201202, end: 20201215
  2. RABEPRAZOLE SODIUM. [Concomitant]
     Active Substance: RABEPRAZOLE SODIUM
     Dates: start: 20201118
  3. RISEDRONATE NA [Concomitant]
     Active Substance: RISEDRONATE SODIUM
     Dates: start: 20201127
  4. DAIPHEN [Concomitant]
     Active Substance: SULFAMETHOXAZOLE\TRIMETHOPRIM
     Dates: start: 20201211
  5. DENOSINE [GANCICLOVIR] [Suspect]
     Active Substance: GANCICLOVIR
     Indication: CYTOMEGALOVIRUS ENTEROCOLITIS
     Dosage: DENOSINE FOR I.V.INFUSION 500MG (GANCICLOVIR) SOLUTION FOR INFUSION, 500 MILLIGRAM; 350 MILLIGRAM...
     Dates: start: 20201214, end: 20201215
  6. BELSOMRA [Concomitant]
     Active Substance: SUVOREXANT
     Dates: start: 20201127, end: 20210112

REACTIONS (1)
  - Hepatic function abnormal [Recovered/Resolved]

NARRATIVE: CASE EVENT DATE: 20201215
